FAERS Safety Report 5964386-9 (Version None)
Quarter: 2008Q4

REPORT INFORMATION
  Report Type: 
  Country: None (occurrence: None)
  Receive Date: 20081124
  Receipt Date: 20081112
  Transmission Date: 20090506
  Serious: Yes (Hospitalization)
  Sender: FDA-Public Use
  Company Number: DE-PFIZER INC-2008091204

PATIENT
  Sex: Male

DRUGS (7)
  1. LYRICA [Suspect]
     Indication: DIABETIC NEUROPATHY
     Dosage: DAILY DOSE:150MG
     Route: 048
     Dates: start: 20080501
  2. AMLODIPINE [Suspect]
     Indication: ESSENTIAL HYPERTENSION
     Dates: end: 20080101
  3. VALSARTAN [Concomitant]
  4. RAMIPRIL/HYDROCHLOROTHIAZIDE [Concomitant]
  5. INSUMAN BASAL [Concomitant]
  6. INSUMAN RAPID [Concomitant]
  7. ALL OTHER THERAPEUTIC PRODUCTS [Concomitant]

REACTIONS (5)
  - BLOOD PRESSURE INCREASED [None]
  - DYSURIA [None]
  - OEDEMA PERIPHERAL [None]
  - STRANGURY [None]
  - SUPRAPUBIC PAIN [None]
